FAERS Safety Report 4717033-8 (Version None)
Quarter: 2005Q3

REPORT INFORMATION
  Report Type: 
  Country: None (occurrence: None)
  Receive Date: 20050715
  Receipt Date: 20050629
  Transmission Date: 20060218
  Serious: Yes (Other)
  Sender: FDA-Public Use
  Company Number: A-JP2005-10095

PATIENT
  Age: 33 Year
  Sex: Female

DRUGS (3)
  1. TRACLEER [Suspect]
     Indication: PULMONARY HYPERTENSION
     Dosage: 62.5 MG, BID, ORAL
     Route: 048
     Dates: start: 20050623, end: 20050628
  2. FLOLAN [Concomitant]
  3. VIAGRA [Concomitant]

REACTIONS (3)
  - ANAEMIA [None]
  - CATHETER SITE HAEMORRHAGE [None]
  - PLATELET COUNT DECREASED [None]
